FAERS Safety Report 18728635 (Version 1)
Quarter: 2021Q1

REPORT INFORMATION
  Report Type: Spontaneous
  Country: CA (occurrence: CA)
  Receive Date: 20210112
  Receipt Date: 20210112
  Transmission Date: 20210419
  Serious: Yes (Life-Threatening, Hospitalization)
  Sender: FDA-Public Use
  Company Number: CA-JNJFOC-20210111729

PATIENT
  Age: 37 Year
  Sex: Female
  Weight: 85 kg

DRUGS (4)
  1. CYCLEN [Suspect]
     Active Substance: ETHINYL ESTRADIOL\NORGESTIMATE
     Indication: MENORRHAGIA
     Route: 048
  2. XARELTO [Concomitant]
     Active Substance: RIVAROXABAN
     Indication: PRODUCT USED FOR UNKNOWN INDICATION
     Route: 065
  3. ASA [Concomitant]
     Active Substance: ASPIRIN
     Indication: PRODUCT USED FOR UNKNOWN INDICATION
     Route: 065
  4. APIXABAN [Concomitant]
     Active Substance: APIXABAN
     Indication: PRODUCT USED FOR UNKNOWN INDICATION
     Route: 065

REACTIONS (13)
  - Oedema peripheral [Recovering/Resolving]
  - Pulmonary embolism [Recovering/Resolving]
  - Lung opacity [Recovering/Resolving]
  - Pneumonia [Recovering/Resolving]
  - Pain in extremity [Recovering/Resolving]
  - Pulmonary infarction [Recovering/Resolving]
  - Dyspnoea [Recovering/Resolving]
  - Non-cardiac chest pain [Recovering/Resolving]
  - Off label use [Unknown]
  - Product use in unapproved indication [Unknown]
  - Thrombophlebitis superficial [Recovering/Resolving]
  - Myocardial strain [Recovering/Resolving]
  - Deep vein thrombosis [Recovering/Resolving]
